FAERS Safety Report 11611638 (Version 5)
Quarter: 2015Q4

REPORT INFORMATION
  Report Type: Report from Study
  Country: US (occurrence: US)
  Receive Date: 20151008
  Receipt Date: 20151201
  Transmission Date: 20160304
  Serious: Yes (Hospitalization, Other)
  Sender: FDA-Public Use
  Company Number: US-GILEAD-2015-0175711

PATIENT
  Age: 75 Year
  Sex: Female
  Weight: 65.3 kg

DRUGS (4)
  1. REMODULIN [Suspect]
     Active Substance: TREPROSTINIL
     Indication: PULMONARY ARTERIAL HYPERTENSION
     Dosage: 0.004 UG/KG, UNK
     Route: 042
     Dates: start: 20151005
  2. AMBRISENTAN [Suspect]
     Active Substance: AMBRISENTAN
     Indication: PULMONARY ARTERIAL HYPERTENSION
     Dosage: 10 MG, QD
     Route: 048
     Dates: start: 20150917
  3. ADCIRCA [Concomitant]
     Active Substance: TADALAFIL
  4. ESBRIET [Concomitant]
     Active Substance: PIRFENIDONE

REACTIONS (6)
  - Pulmonary arterial hypertension [Unknown]
  - Headache [Unknown]
  - Vomiting [Unknown]
  - Dehydration [Unknown]
  - Pain in jaw [Unknown]
  - Dizziness [Unknown]

NARRATIVE: CASE EVENT DATE: 201510
